FAERS Safety Report 7056844-3 (Version None)
Quarter: 2010Q4

REPORT INFORMATION
  Report Type: 
  Country: None (occurrence: None)
  Receive Date: 20101022
  Receipt Date: 20101014
  Transmission Date: 20110411
  Serious: Yes (Hospitalization)
  Sender: FDA-Public Use
  Company Number: JP-JNJFOC-20101004383

PATIENT
  Age: 69 Year
  Sex: Female
  Weight: 45 kg

DRUGS (3)
  1. DUROTEP MT [Suspect]
     Indication: PRODUCT USED FOR UNKNOWN INDICATION
     Route: 062
  2. PSYCHOTROPICS NOS [Suspect]
     Indication: BIPOLAR DISORDER
     Route: 065
  3. HYPNOTICS [Suspect]
     Indication: BIPOLAR DISORDER
     Route: 065

REACTIONS (6)
  - ALTERED STATE OF CONSCIOUSNESS [None]
  - DEHYDRATION [None]
  - FEELING ABNORMAL [None]
  - HYPERNATRAEMIA [None]
  - INTENTIONAL DRUG MISUSE [None]
  - PNEUMONIA ASPIRATION [None]
